FAERS Safety Report 6374465-2 (Version None)
Quarter: 2009Q3

REPORT INFORMATION
  Report Type: 
  Country: None (occurrence: None)
  Receive Date: 20090924
  Receipt Date: 20090921
  Transmission Date: 20100115
  Serious: Yes (Other)
  Sender: FDA-Public Use
  Company Number: US-BRISTOL-MYERS SQUIBB COMPANY-14787113

PATIENT
  Age: 25 Year
  Sex: Male

DRUGS (2)
  1. ABILIFY [Suspect]
  2. COCAINE [Concomitant]

REACTIONS (2)
  - NEUROLEPTIC MALIGNANT SYNDROME [None]
  - RENAL FAILURE [None]
